FAERS Safety Report 13548633 (Version 1)
Quarter: 2017Q2

REPORT INFORMATION
  Report Type: Spontaneous
  Country: US (occurrence: US)
  Receive Date: 20170516
  Receipt Date: 20170516
  Transmission Date: 20170830
  Serious: No
  Sender: FDA-Public Use
  Company Number: US-JNJFOC-20170425949

PATIENT
  Sex: Male
  Weight: 81.65 kg

DRUGS (4)
  1. MENS ROGAINE EXTRA STRENGTH [Suspect]
     Active Substance: MINOXIDIL
     Indication: ANDROGENETIC ALOPECIA
     Dosage: 1/4 - 1/2 CAN PER DAY FOR 2 APPLICATIONS
     Route: 061
     Dates: start: 201510
  2. MENS ROGAINE EXTRA STRENGTH [Suspect]
     Active Substance: MINOXIDIL
     Indication: ALOPECIA
     Dosage: 1/4 - 1/2 CAN PER DAY FOR 2 APPLICATIONS
     Route: 061
     Dates: start: 201510
  3. KETOCONAZOLE. [Concomitant]
     Active Substance: KETOCONAZOLE
     Indication: ANDROGENETIC ALOPECIA
     Dosage: 3 X WEEK
     Route: 065
  4. LEVOTHYROXINE. [Concomitant]
     Active Substance: LEVOTHYROXINE
     Indication: HYPOTHYROIDISM
     Dosage: 75 MMIICROGRAMS/DAIL
     Route: 065
     Dates: start: 201602

REACTIONS (4)
  - Left ventricular hypertrophy [Unknown]
  - Therapeutic response unexpected [Unknown]
  - Overdose [Unknown]
  - Product use in unapproved indication [Unknown]

NARRATIVE: CASE EVENT DATE: 2017
